FAERS Safety Report 6062444-4 (Version None)
Quarter: 2009Q1

REPORT INFORMATION
  Report Type: 
  Country: None (occurrence: None)
  Receive Date: 20090203
  Receipt Date: 20090121
  Transmission Date: 20090719
  Serious: Yes (Other)
  Sender: FDA-Public Use
  Company Number: IT-CELGENEUS-083-20785-09011213

PATIENT
  Age: 68 Year
  Sex: Female

DRUGS (4)
  1. THALIDOMIDE [Suspect]
     Indication: MULTIPLE MYELOMA
     Route: 048
  2. DEXAMETHASONE [Concomitant]
     Indication: MULTIPLE MYELOMA
     Route: 065
  3. MELPHALAN [Concomitant]
     Indication: MULTIPLE MYELOMA
     Route: 065
  4. NEUPOGEN [Concomitant]
     Route: 065

REACTIONS (2)
  - APPENDICITIS [None]
  - WHITE BLOOD CELL COUNT DECREASED [None]
